FAERS Safety Report 16311986 (Version 1)
Quarter: 2019Q2

REPORT INFORMATION
  Report Type: Spontaneous
  Country: US (occurrence: US)
  Receive Date: 20190515
  Receipt Date: 20190515
  Transmission Date: 20190711
  Serious: No
  Sender: FDA-Public Use
  Company Number: US-GLAXOSMITHKLINE-US2019081209

PATIENT
  Age: 73 Year
  Sex: Female

DRUGS (3)
  1. ABREVA [Suspect]
     Active Substance: DOCOSANOL
     Dosage: UNK
     Dates: start: 20190502, end: 20190504
  2. ABREVA [Suspect]
     Active Substance: DOCOSANOL
     Dosage: HAD USED AN EXPIRED PRODUCT AND
  3. ABREVA [Suspect]
     Active Substance: DOCOSANOL
     Indication: ORAL HERPES
     Dosage: UNK
     Dates: start: 20190502, end: 20190504

REACTIONS (2)
  - Expired product administered [Unknown]
  - Incorrect product administration duration [Unknown]
